FAERS Safety Report 6722519-0 (Version None)
Quarter: 2010Q2

REPORT INFORMATION
  Report Type: 
  Country: None (occurrence: None)
  Receive Date: 20100512
  Receipt Date: 20100429
  Transmission Date: 20101027
  Serious: Yes (Other)
  Sender: FDA-Public Use
  Company Number: US-ELI_LILLY_AND_COMPANY-US201004008508

PATIENT
  Sex: Male
  Weight: 63.492 kg

DRUGS (15)
  1. ZYPREXA [Suspect]
     Indication: ANXIETY
     Dosage: 5 MG, AS NEEDED
     Dates: start: 20050101, end: 20100101
  2. ZYPREXA [Suspect]
     Dosage: 15 MG, UNK
     Dates: start: 20100101, end: 20100401
  3. XANAX [Concomitant]
     Indication: SLEEP DISORDER
     Dosage: 2 MG, 3/D
     Route: 048
     Dates: start: 20060101
  4. XANAX [Concomitant]
     Dosage: 0.5 MG, UNK
  5. XANAX [Concomitant]
     Dosage: 1 MG, UNK
  6. XANAX [Concomitant]
     Dosage: 1.5 MG, UNK
  7. RIBAVIRIN [Concomitant]
  8. BUPRENORPHINE W/NALOXONE [Concomitant]
  9. TEMAZEPAM [Concomitant]
     Indication: SLEEP DISORDER
     Dosage: 1 D/F, UNK
     Dates: start: 20060101
  10. TEMAZEPAM [Concomitant]
     Dosage: 2 D/F, UNK
  11. FENTANYL [Concomitant]
     Indication: DRUG THERAPY
  12. HYDROCODONE BITARTRATE [Concomitant]
  13. MORPHINE [Concomitant]
  14. CODEINE SULFATE [Concomitant]
  15. PROPOXYPHENE [Concomitant]

REACTIONS (13)
  - ANXIETY [None]
  - DEPRESSION [None]
  - EATING DISORDER [None]
  - ENERGY INCREASED [None]
  - HEPATITIS C [None]
  - MALAISE [None]
  - OFF LABEL USE [None]
  - RESTLESS LEGS SYNDROME [None]
  - SEDATION [None]
  - SLEEP DISORDER [None]
  - TACHYPHRENIA [None]
  - WEIGHT DECREASED [None]
  - WHITE BLOOD CELL COUNT DECREASED [None]
